FAERS Safety Report 9614489 (Version 1)
Quarter: 2013Q4

REPORT INFORMATION
  Report Type: Spontaneous
  Country: SE (occurrence: SE)
  Receive Date: 20131011
  Receipt Date: 20131011
  Transmission Date: 20140711
  Serious: Yes (Hospitalization)
  Sender: FDA-Public Use
  Company Number: SE-009507513-1310SWE002686

PATIENT
  Age: 81 Year
  Sex: Female

DRUGS (2)
  1. MIRTAZAPINE [Suspect]
     Indication: DEPRESSION
  2. KLOPIDOGREL ARROW [Concomitant]

REACTIONS (4)
  - Fall [Unknown]
  - Fatigue [Unknown]
  - Dizziness [Unknown]
  - Confusional state [Unknown]
